FAERS Safety Report 8345023-5 (Version None)
Quarter: 2012Q2

REPORT INFORMATION
  Report Type: 
  Country: None (occurrence: None)
  Receive Date: 20120508
  Receipt Date: 20120430
  Transmission Date: 20120825
  Serious: Yes (Other)
  Sender: FDA-Public Use
  Company Number: US-BAYER-2012-022185

PATIENT
  Sex: Female

DRUGS (1)
  1. MIRENA [Suspect]
     Indication: CONTRACEPTION
     Dosage: 20 MCG/24HR, CONT
     Dates: start: 20110501, end: 20120229

REACTIONS (4)
  - DERMOID CYST [None]
  - OVARIAN CYST RUPTURED [None]
  - MATERNAL EXPOSURE DURING PREGNANCY [None]
  - ECTOPIC PREGNANCY WITH INTRAUTERINE DEVICE [None]
